FAERS Safety Report 5162406-5 (Version None)
Quarter: 2006Q4

REPORT INFORMATION
  Report Type: 
  Country: None (occurrence: None)
  Receive Date: 20061128
  Receipt Date: 20061128
  Transmission Date: 20070319
  Serious: Yes (Other)
  Sender: FDA-Public Use
  Company Number: None

PATIENT
  Age: 70 Year
  Sex: Male
  Weight: 94.3482 kg

DRUGS (14)
  1. AMITRIPTYLINE HCL [Suspect]
     Indication: SOMNOLENCE
     Dosage: 50 MG PO QHS
     Route: 048
     Dates: start: 20060720, end: 20060726
  2. OMEPRAZOLE [Concomitant]
  3. CILOSTAZOL [Concomitant]
  4. CLOTRIMAZOLE [Concomitant]
  5. FLUNISOLIDE [Concomitant]
  6. INSULIN HUMAN REGULAR [Concomitant]
  7. KETOTIFEN [Concomitant]
  8. LORATADINE [Concomitant]
  9. LOSARTAN POSTASSIUM [Concomitant]
  10. METOPROLOL SUCCINATE [Concomitant]
  11. MORPHINE [Concomitant]
  12. NIFEDIPINE [Concomitant]
  13. NITROGLYCERIN [Concomitant]
  14. SIMVASTATIN [Concomitant]

REACTIONS (2)
  - ABNORMAL DREAMS [None]
  - HALLUCINATION [None]
